FAERS Safety Report 8062931-3 (Version None)
Quarter: 2012Q1

REPORT INFORMATION
  Report Type: 
  Country: None (occurrence: None)
  Receive Date: 20120123
  Receipt Date: 20120123
  Transmission Date: 20120608
  Serious: Yes (Other)
  Sender: FDA-Public Use
  Company Number: None

PATIENT
  Age: 42 Year
  Sex: Female
  Weight: 70.306 kg

DRUGS (1)
  1. CIPROFLOXACIN HCL [Suspect]
     Indication: URINARY TRACT INFECTION
     Dosage: 500MG
     Route: 048
     Dates: start: 20120114, end: 20120121

REACTIONS (6)
  - BLISTER [None]
  - SKIN WARM [None]
  - SKIN DISCOLOURATION [None]
  - INFLAMMATION [None]
  - PRURITUS [None]
  - PAIN IN EXTREMITY [None]
